FAERS Safety Report 18772791 (Version 1)
Quarter: 2021Q1

REPORT INFORMATION
  Report Type: Spontaneous
  Country: US (occurrence: US)
  Receive Date: 20210122
  Receipt Date: 20210122
  Transmission Date: 20210419
  Serious: Yes (Other)
  Sender: FDA-Public Use
  Company Number: US-SA-2021SA019204

PATIENT

DRUGS (1)
  1. ZANTAC [Suspect]
     Active Substance: RANITIDINE HYDROCHLORIDE
     Dosage: UNK
     Dates: start: 2008, end: 2017

REACTIONS (5)
  - Nasal cavity cancer [Unknown]
  - Throat cancer [Unknown]
  - Gastric cancer [Unknown]
  - Oesophageal carcinoma [Unknown]
  - Hepatic cancer [Unknown]

NARRATIVE: CASE EVENT DATE: 20200513
